FAERS Safety Report 16534471 (Version 1)
Quarter: 2019Q3

REPORT INFORMATION
  Report Type: Spontaneous
  Country: US (occurrence: US)
  Receive Date: 20190704
  Receipt Date: 20190704
  Transmission Date: 20191004
  Serious: No
  Sender: FDA-Public Use
  Company Number: None

PATIENT
  Age: 64 Year
  Sex: Male
  Weight: 103.5 kg

DRUGS (3)
  1. ASPIRIN. [Concomitant]
     Active Substance: ASPIRIN
  2. COENZYME Q10 [Concomitant]
     Active Substance: UBIDECARENONE
  3. LIVALO [Suspect]
     Active Substance: PITAVASTATIN CALCIUM
     Indication: HYPERCHOLESTEROLAEMIA
     Dosage: ?          QUANTITY:30 TABLET(S);?
     Route: 048
     Dates: start: 20190328, end: 20190620

REACTIONS (6)
  - Malaise [None]
  - Gastrooesophageal reflux disease [None]
  - Abdominal distension [None]
  - Gastrointestinal sounds abnormal [None]
  - Constipation [None]
  - Flatulence [None]

NARRATIVE: CASE EVENT DATE: 20190620
